FAERS Safety Report 11131406 (Version 2)
Quarter: 2015Q2

REPORT INFORMATION
  Report Type: Spontaneous
  Country: FR (occurrence: FR)
  Receive Date: 20150522
  Receipt Date: 20150603
  Transmission Date: 20150821
  Serious: Yes (Other)
  Sender: FDA-Public Use
  Company Number: FR-BAYER-2015-253337

PATIENT
  Age: 53 Year
  Sex: Male

DRUGS (2)
  1. STIVARGA [Suspect]
     Active Substance: REGORAFENIB
     Indication: ADENOCARCINOMA OF COLON
     Dosage: 4 DF, QD
     Route: 048
     Dates: start: 20141229, end: 20150112
  2. STIVARGA [Suspect]
     Active Substance: REGORAFENIB
     Indication: ADENOCARCINOMA OF COLON
     Dosage: 4 DF, QD
     Route: 048
     Dates: end: 20150413

REACTIONS (7)
  - Hepatocellular injury [Recovered/Resolved]
  - Myalgia [Recovered/Resolved]
  - Cholestasis [Recovered/Resolved]
  - Rash [Recovered/Resolved]
  - Hypothyroidism [Recovering/Resolving]
  - Chills [Recovered/Resolved]
  - Asthenia [Recovered/Resolved]

NARRATIVE: CASE EVENT DATE: 20141230
